FAERS Safety Report 15330804 (Version 1)
Quarter: 2018Q3

REPORT INFORMATION
  Report Type: Spontaneous
  Country: JP (occurrence: JP)
  Receive Date: 20180829
  Receipt Date: 20180829
  Transmission Date: 20181010
  Serious: Yes (Other)
  Sender: FDA-Public Use
  Company Number: JP-MYLANLABS-2018M1064384

PATIENT
  Age: 61 Year

DRUGS (2)
  1. CLARITHROMYCIN MYLAN [Suspect]
     Active Substance: CLARITHROMYCIN
     Indication: EXTRANODAL MARGINAL ZONE B-CELL LYMPHOMA (MALT TYPE)
  2. CLARITHROMYCIN MYLAN [Suspect]
     Active Substance: CLARITHROMYCIN
     Indication: HELICOBACTER TEST NEGATIVE
     Dosage: 2.0 G, QD (AFTER BREAKFAST)
     Route: 048
     Dates: start: 201703

REACTIONS (3)
  - Bradycardia [Unknown]
  - Blood pressure decreased [Unknown]
  - Prescribed overdose [Unknown]
